FAERS Safety Report 18244379 (Version 3)
Quarter: 2022Q1

REPORT INFORMATION
  Report Type: Spontaneous
  Country: US (occurrence: US)
  Receive Date: 20200908
  Receipt Date: 20220214
  Transmission Date: 20220424
  Serious: No
  Sender: FDA-Public Use
  Company Number: US-PFIZER INC-2020322560

PATIENT
  Age: 70 Year
  Sex: Female

DRUGS (2)
  1. IBRANCE [Suspect]
     Active Substance: PALBOCICLIB
     Indication: Breast cancer female
     Dosage: 125 MG
  2. IBRANCE [Suspect]
     Active Substance: PALBOCICLIB
     Indication: Bone cancer

REACTIONS (6)
  - Circumstance or information capable of leading to medication error [Unknown]
  - Product dose omission issue [Unknown]
  - Hypoacusis [Unknown]
  - Nasopharyngitis [Unknown]
  - Cough [Unknown]
  - Laboratory test abnormal [Recovering/Resolving]

NARRATIVE: CASE EVENT DATE: 20220101
